FAERS Safety Report 4639148-5 (Version None)
Quarter: 2005Q2

REPORT INFORMATION
  Report Type: 
  Country: None (occurrence: None)
  Receive Date: 20050415
  Receipt Date: 20050415
  Transmission Date: 20051028
  Serious: No
  Sender: FDA-Public Use
  Company Number: None

PATIENT
  Sex: Male
  Weight: 136.0791 kg

DRUGS (2)
  1. SEROQUEL [Suspect]
     Indication: PARANOIA
     Dosage: 200 MG - 1 A DAY (PILL)
     Dates: end: 20030101
  2. SEROQUEL [Suspect]
     Indication: SCHIZOPHRENIA
     Dosage: 200 MG - 1 A DAY (PILL)
     Dates: end: 20030101

REACTIONS (5)
  - DISORIENTATION [None]
  - DIZZINESS [None]
  - HEADACHE [None]
  - HYPERHIDROSIS [None]
  - SEDATION [None]
